FAERS Safety Report 10128477 (Version 3)
Quarter: 2014Q3

REPORT INFORMATION
  Report Type: Spontaneous
  Country: US (occurrence: None)
  Receive Date: 20140424
  Receipt Date: 20140828
  Transmission Date: 20150326
  Serious: Yes (Other)
  Sender: FDA-Public Use
  Company Number: CIO14026660

PATIENT
  Sex: Female

DRUGS (3)
  1. CREST 3D WHTIE LUXE LUSTROUS SHINE WHITENING TOOTHPASTE BRILLIANT MINT GEL/PASTE [Concomitant]
  2. CREST 3D WHITE [Suspect]
     Active Substance: SODIUM FLUORIDE
     Dosage: INTRAORAL
  3. CREST 3D WHITE LUXE GLAMOROUS WHITE TOOTHPASTE, VIBRANT MINT FLAVOR [Concomitant]

REACTIONS (3)
  - Anaphylactic reaction [None]
  - Dyspnoea [None]
  - Urticaria [None]

NARRATIVE: CASE EVENT DATE: 20140401
